FAERS Safety Report 21601278 (Version 2)
Quarter: 2023Q1

REPORT INFORMATION
  Report Type: Spontaneous
  Country: JP (occurrence: JP)
  Receive Date: 20221116
  Receipt Date: 20230127
  Transmission Date: 20230418
  Serious: Yes (Other)
  Sender: FDA-Public Use
  Company Number: JP-002147023-NVSJ2022JP100826

PATIENT
  Age: 80 Year
  Sex: Female
  Weight: 61.3 kg

DRUGS (6)
  1. AFINITOR [Suspect]
     Active Substance: EVEROLIMUS
     Indication: Breast cancer
     Dosage: 10 MG
     Route: 048
     Dates: start: 20211119, end: 20211202
  2. AFINITOR [Suspect]
     Active Substance: EVEROLIMUS
     Dosage: 5 MG, QD, AFTER BREAKFAST
     Route: 048
     Dates: start: 20211227, end: 20220301
  3. AFINITOR [Suspect]
     Active Substance: EVEROLIMUS
     Dosage: 5 MG, QD, AFTER BREAKFAST
     Route: 048
     Dates: start: 20220317, end: 20220526
  4. AROMASIN [Concomitant]
     Active Substance: EXEMESTANE
     Indication: Breast cancer
     Dosage: 25 MG, QD, AFTER BREAKFAST
     Route: 048
     Dates: start: 20211119, end: 20220526
  5. PYRIDOXAL [Concomitant]
     Active Substance: PYRIDOXAL
     Indication: Palmar-plantar erythrodysaesthesia syndrome
     Dosage: 60 MG, BID, AFTER BREAKFAST AND DINNER
     Route: 048
     Dates: start: 20210215, end: 20220526
  6. FUROSEMIDE [Concomitant]
     Active Substance: FUROSEMIDE
     Indication: Oedema
     Dosage: 40 MG, QD, AFTER BREAKFAST
     Route: 048
     Dates: start: 20211203, end: 20220526

REACTIONS (5)
  - Hypothyroidism [Recovering/Resolving]
  - Generalised oedema [Recovering/Resolving]
  - Lacunar infarction [Unknown]
  - COVID-19 [Unknown]
  - Zinc deficiency [Unknown]

NARRATIVE: CASE EVENT DATE: 20211201
